FAERS Safety Report 18916798 (Version 5)
Quarter: 2022Q3

REPORT INFORMATION
  Report Type: Report from Study
  Country: CA (occurrence: CA)
  Receive Date: 20210219
  Receipt Date: 20220924
  Transmission Date: 20221027
  Serious: Yes (Other)
  Sender: FDA-Public Use
  Company Number: CA-NOVARTISPH-PHHY2019CA176230

PATIENT
  Age: 47 Year
  Sex: Male
  Weight: 79 kg

DRUGS (4)
  1. COSENTYX [Suspect]
     Active Substance: SECUKINUMAB
     Indication: Ankylosing spondylitis
     Dosage: 150 MG, QMO
     Route: 058
     Dates: start: 20180606, end: 20220809
  2. COSENTYX [Suspect]
     Active Substance: SECUKINUMAB
     Dosage: 300 MG, QMO
     Route: 058
  3. NAPROXEN [Concomitant]
     Active Substance: NAPROXEN
     Indication: Product used for unknown indication
     Dosage: UNK UNK, PRN
     Route: 065
     Dates: start: 2012
  4. IBUPROFEN [Concomitant]
     Active Substance: IBUPROFEN
     Indication: Product used for unknown indication
     Dosage: UNK UNK, PRN
     Route: 065
     Dates: start: 2016

REACTIONS (23)
  - Psoriatic arthropathy [Unknown]
  - Hypoaesthesia [Not Recovered/Not Resolved]
  - Ankylosing spondylitis [Unknown]
  - Arthralgia [Unknown]
  - Muscle spasms [Unknown]
  - Dactylitis [Unknown]
  - Back pain [Unknown]
  - Musculoskeletal stiffness [Unknown]
  - Tendon disorder [Unknown]
  - Pain in extremity [Unknown]
  - Joint swelling [Unknown]
  - Dysphonia [Unknown]
  - Middle insomnia [Recovering/Resolving]
  - Viral infection [Unknown]
  - Parotid gland enlargement [Unknown]
  - Nail disorder [Unknown]
  - Memory impairment [Unknown]
  - Hyperchlorhydria [Recovering/Resolving]
  - Blood pressure systolic increased [Unknown]
  - Psoriasis [Unknown]
  - Spondyloarthropathy [Unknown]
  - Osteoarthritis [Unknown]
  - Drug ineffective [Unknown]

NARRATIVE: CASE EVENT DATE: 20201202
